FAERS Safety Report 4776704-8 (Version None)
Quarter: 2005Q3

REPORT INFORMATION
  Report Type: 
  Country: None (occurrence: None)
  Receive Date: 20050923
  Receipt Date: 20050912
  Transmission Date: 20060218
  Serious: Yes (Death, Other)
  Sender: FDA-Public Use
  Company Number: NSADSS2003015540

PATIENT
  Sex: Male

DRUGS (7)
  1. REMICADE [Suspect]
     Route: 041
  2. REMICADE [Suspect]
     Indication: RHEUMATOID ARTHRITIS
     Route: 041
  3. HYTRIN [Concomitant]
  4. LASIX [Concomitant]
  5. K-DUR 10 [Concomitant]
  6. PREDNISONE [Concomitant]
  7. B-12 [Concomitant]

REACTIONS (2)
  - LIP AND/OR ORAL CAVITY CANCER [None]
  - PROSTATE CANCER [None]
